FAERS Safety Report 24802260 (Version 1)
Quarter: 2025Q1

REPORT INFORMATION
  Report Type: Spontaneous
  Country: US (occurrence: None)
  Receive Date: 20250103
  Receipt Date: 20250103
  Transmission Date: 20250409
  Serious: No
  Sender: REDHILL BIOPHARMA INC.
  Company Number: US-ARIS GLOBAL-RDH202312-000132

PATIENT
  Age: 63 Year
  Sex: Female

DRUGS (2)
  1. AEMCOLO [Suspect]
     Active Substance: RIFAMYCIN
     Indication: Mycobacterium avium complex infection
     Route: 065
  2. AEMCOLO [Suspect]
     Active Substance: RIFAMYCIN
     Indication: Pneumonia

REACTIONS (2)
  - Drug intolerance [Unknown]
  - Product prescribing issue [Unknown]
